FAERS Safety Report 19228250 (Version 2)
Quarter: 2023Q4

REPORT INFORMATION
  Report Type: Spontaneous
  Country: FR (occurrence: FR)
  Receive Date: 20210506
  Receipt Date: 20231130
  Transmission Date: 20240110
  Serious: Yes (Hospitalization, Other)
  Sender: FDA-Public Use
  Company Number: FR-BRISTOL-MYERS SQUIBB COMPANY-BMS-2021-042180

PATIENT
  Age: 74 Year
  Sex: Female
  Weight: 64 kg

DRUGS (14)
  1. ORENCIA [Suspect]
     Active Substance: ABATACEPT
     Indication: Rheumatoid arthritis
     Dosage: 500 MILLIGRAM, QMO
     Route: 042
     Dates: start: 202102
  2. METHOTREXATE SODIUM [Suspect]
     Active Substance: METHOTREXATE SODIUM
     Indication: Rheumatoid arthritis
     Dosage: 1 DOSAGE FORM, QWK
     Route: 058
     Dates: start: 2007
  3. COMIRNATY (TOZINAMERAN) [Suspect]
     Active Substance: TOZINAMERAN
     Indication: COVID-19 immunisation
     Dosage: D1
     Route: 030
     Dates: start: 20210219, end: 20210219
  4. DIOSMIN [Concomitant]
     Active Substance: DIOSMIN
     Indication: Product used for unknown indication
     Dosage: 2 DOSAGE FORM, QD
     Route: 048
  5. OMEPRAZOLE [Concomitant]
     Active Substance: OMEPRAZOLE
     Indication: Product used for unknown indication
     Route: 048
  6. LEVOCETIRIZINE DIHYDROCHLORIDE [Concomitant]
     Active Substance: LEVOCETIRIZINE DIHYDROCHLORIDE
     Indication: Rhinitis allergic
     Dosage: 1 DOSAGE FORM, QD
     Route: 048
  7. PULMICORT TURBUHALER [Concomitant]
     Active Substance: BUDESONIDE
     Indication: Bronchitis chronic
     Dosage: 1 DOSAGE FORM, QD
     Route: 055
  8. ZOPICLONE [Concomitant]
     Active Substance: ZOPICLONE
     Indication: Insomnia
     Route: 048
  9. TIOTROPIUM [Concomitant]
     Active Substance: TIOTROPIUM
     Indication: Bronchitis chronic
     Route: 055
  10. FORADIL [Concomitant]
     Active Substance: FORMOTEROL FUMARATE
     Indication: Bronchitis chronic
     Dosage: 2 DOSAGE FORM, QD
     Route: 055
  11. FOLIC ACID [Concomitant]
     Active Substance: FOLIC ACID
     Indication: Folate deficiency
     Dosage: 3 DOSAGE FORM, QWK
     Route: 048
     Dates: start: 2007
  12. SALAZO [Concomitant]
     Indication: Rheumatoid arthritis
     Route: 048
     Dates: start: 2007
  13. SINGULAIR [Concomitant]
     Active Substance: MONTELUKAST SODIUM
     Indication: Bronchitis chronic
     Dosage: 1 DOSAGE FORM, QD
     Route: 048
  14. LOSARTAN [Concomitant]
     Active Substance: LOSARTAN
     Indication: Hypertension
     Route: 048

REACTIONS (1)
  - Deep vein thrombosis [Recovered/Resolved]

NARRATIVE: CASE EVENT DATE: 20210223
